FAERS Safety Report 5125161-0 (Version None)
Quarter: 2006Q4

REPORT INFORMATION
  Report Type: 
  Country: None (occurrence: None)
  Receive Date: 20061006
  Receipt Date: 20060925
  Transmission Date: 20070319
  Serious: Yes (Other)
  Sender: FDA-Public Use
  Company Number: 2006110401

PATIENT
  Sex: Female

DRUGS (1)
  1. MINOXIDIL [Suspect]
     Indication: ALOPECIA
     Dosage: TWICE DAILY, TOPICAL
     Route: 061
     Dates: start: 20060701, end: 20060101

REACTIONS (4)
  - DRUG HYPERSENSITIVITY [None]
  - PALPITATIONS [None]
  - PRURITUS GENERALISED [None]
  - SWELLING FACE [None]
